FAERS Safety Report 6106324-4 (Version None)
Quarter: 2009Q1

REPORT INFORMATION
  Report Type: 
  Country: None (occurrence: None)
  Receive Date: 20090306
  Receipt Date: 20090226
  Transmission Date: 20090719
  Serious: Yes (Disabling, Other)
  Sender: FDA-Public Use
  Company Number: PHHY2009FR05919

PATIENT
  Sex: Female

DRUGS (6)
  1. ACLASTA [Suspect]
     Indication: SPINAL FRACTURE
     Dosage: 5 MG
     Dates: start: 20090101
  2. ACLASTA [Suspect]
     Indication: OSTEOPOROTIC FRACTURE
  3. OMEPRAZOLE [Concomitant]
     Dosage: UNK
  4. VASTEN [Concomitant]
     Dosage: UNK
  5. TANAKAN [Concomitant]
     Dosage: UNK
  6. ESCITALOPRAM [Concomitant]
     Dosage: 0.5 DF, QD

REACTIONS (3)
  - CHONDROCALCINOSIS [None]
  - INFLAMMATION [None]
  - POLYARTHRITIS [None]
